APPROVED DRUG PRODUCT: SEVELAMER CARBONATE
Active Ingredient: SEVELAMER CARBONATE
Strength: 800MG
Dosage Form/Route: TABLET;ORAL
Application: A204451 | Product #001 | TE Code: AB
Applicant: RISING PHARMA HOLDINGS INC
Approved: Nov 29, 2018 | RLD: No | RS: No | Type: RX